FAERS Safety Report 12104240 (Version 2)
Quarter: 2016Q2

REPORT INFORMATION
  Report Type: Spontaneous
  Country: US (occurrence: US)
  Receive Date: 20160223
  Receipt Date: 20160503
  Transmission Date: 20160815
  Serious: Yes (Other)
  Sender: FDA-Public Use
  Company Number: US-ROCHE-1714279

PATIENT
  Age: 91 Year
  Sex: Male
  Weight: 78.45 kg

DRUGS (17)
  1. CHLORAMBUCIL [Suspect]
     Active Substance: CHLORAMBUCIL
     Indication: CHRONIC LYMPHOCYTIC LEUKAEMIA
     Route: 048
     Dates: start: 20151012, end: 20160105
  2. CLINDAMYCIN [Concomitant]
     Active Substance: CLINDAMYCIN\CLINDAMYCIN PHOSPHATE
     Dosage: 4 CAPSULE (150MG) 1HOUR BEFORE
     Route: 048
  3. VITAMIN C [Concomitant]
     Active Substance: ASCORBIC ACID
     Dosage: ONE TABLET A DAY
     Route: 065
  4. CRESTOR [Concomitant]
     Active Substance: ROSUVASTATIN CALCIUM
     Route: 048
  5. NITROGLYCERIN. [Concomitant]
     Active Substance: NITROGLYCERIN
     Indication: CHEST PAIN
     Dosage: 1TAB SUBLINGUAL AS NEEDED FOR CHEST PAIN
     Route: 060
  6. COUMADIN [Concomitant]
     Active Substance: WARFARIN SODIUM
     Dosage: TAKE 2-3 TABLETS DAILY OR AS DIRECTED PER PT/INR
     Route: 065
  7. GABAPENTIN. [Concomitant]
     Active Substance: GABAPENTIN
     Dosage: 2 TIMES EVERY DAY
     Route: 048
  8. GAZYVA [Suspect]
     Active Substance: OBINUTUZUMAB
     Indication: CHRONIC LYMPHOCYTIC LEUKAEMIA
     Route: 042
     Dates: start: 20151012, end: 20160105
  9. CICLOPIROX. [Concomitant]
     Active Substance: CICLOPIROX
     Route: 061
  10. LISINOPRIL. [Concomitant]
     Active Substance: LISINOPRIL
     Route: 048
  11. LEUKERAN [Concomitant]
     Active Substance: CHLORAMBUCIL
     Route: 048
  12. X-VIATE [Concomitant]
     Active Substance: UREA
     Dosage: APPLY TO FEET NIGHTLY
     Route: 061
  13. PROSCAR [Concomitant]
     Active Substance: FINASTERIDE
     Route: 065
  14. ATENOLOL. [Concomitant]
     Active Substance: ATENOLOL
     Dosage: 1 TABLET BY MOUTH TWICE A DAY
     Route: 048
  15. MEPHYTON [Concomitant]
     Active Substance: PHYTONADIONE
     Dosage: TAKE 1 TABLET BY ORAL ROUTE X1 DOSE
     Route: 048
  16. TRIAMCINOLONE ACETONIDE. [Concomitant]
     Active Substance: TRIAMCINOLONE ACETONIDE
     Dosage: 2 TIMES EVERY DAY X2 WEEKS
     Route: 061
  17. HYDROCHLOROTHIAZIDE. [Concomitant]
     Active Substance: HYDROCHLOROTHIAZIDE
     Route: 048

REACTIONS (2)
  - Bladder cancer [Unknown]
  - Haematuria [Recovering/Resolving]

NARRATIVE: CASE EVENT DATE: 201601
